FAERS Safety Report 24668577 (Version 1)
Quarter: 2024Q4

REPORT INFORMATION
  Report Type: Spontaneous
  Country: US (occurrence: US)
  Receive Date: 20241127
  Receipt Date: 20241127
  Transmission Date: 20250115
  Serious: No
  Sender: AMNEAL
  Company Number: US-AMNEAL PHARMACEUTICALS-2024-AMRX-00623

PATIENT

DRUGS (1)
  1. IBUPROFEN [Suspect]
     Active Substance: IBUPROFEN
     Indication: Musculoskeletal discomfort
     Dosage: UNK
     Route: 065

REACTIONS (1)
  - Blood pressure increased [Unknown]
